FAERS Safety Report 14298223 (Version 1)
Quarter: 2017Q4

REPORT INFORMATION
  Report Type: Spontaneous
  Country: GB (occurrence: GB)
  Receive Date: 20171218
  Receipt Date: 20171218
  Transmission Date: 20180321
  Serious: Yes (Other)
  Sender: FDA-Public Use
  Company Number: GB-ABBVIE-17P-167-2196955-00

PATIENT

DRUGS (1)
  1. VALPROATE SODIUM. [Suspect]
     Active Substance: VALPROATE SODIUM
     Indication: PATERNAL DRUGS AFFECTING FOETUS
     Route: 050

REACTIONS (2)
  - Foetal anticonvulsant syndrome [Unknown]
  - Paternal exposure before pregnancy [Unknown]
